FAERS Safety Report 10052164 (Version 1)
Quarter: 2014Q2

REPORT INFORMATION
  Report Type: Spontaneous
  Country: US (occurrence: None)
  Receive Date: 20140401
  Receipt Date: 20140401
  Transmission Date: 20141212
  Serious: Yes (Other)
  Sender: FDA-Public Use
  Company Number: None

PATIENT
  Sex: Female

DRUGS (2)
  1. CYTOXAN [Suspect]
     Indication: PLASMA CELL MYELOMA
  2. VELCADE [Suspect]
     Indication: PLASMA CELL MYELOMA

REACTIONS (1)
  - Drug intolerance [None]
